FAERS Safety Report 17887136 (Version 2)
Quarter: 2020Q3

REPORT INFORMATION
  Report Type: Report from Study
  Country: SE (occurrence: SE)
  Receive Date: 20200612
  Receipt Date: 20200716
  Transmission Date: 20201103
  Serious: Yes (Other)
  Sender: FDA-Public Use
  Company Number: SE-AUROBINDO-AUR-APL-2020-027449

PATIENT
  Age: 40 Year
  Sex: Male

DRUGS (2)
  1. SERTRALINE [Suspect]
     Active Substance: SERTRALINE HYDROCHLORIDE
     Indication: PRODUCT USED FOR UNKNOWN INDICATION
     Dosage: UNK
     Route: 065
  2. TRAMADOL. [Suspect]
     Active Substance: TRAMADOL
     Indication: BACK PAIN
     Dosage: 50 MILLIGRAM, ONCE A DAY
     Route: 065

REACTIONS (18)
  - Photophobia [Recovered/Resolved]
  - Irritability [Recovered/Resolved]
  - Anxiety [Recovered/Resolved]
  - Cognitive disorder [Recovered/Resolved]
  - Withdrawal syndrome [Recovered/Resolved]
  - Hyperacusis [Recovered/Resolved]
  - Suicidal ideation [Recovered/Resolved]
  - Toxicity to various agents [Recovered/Resolved]
  - Psychotic disorder [Recovered/Resolved]
  - Sexual dysfunction [Recovered/Resolved]
  - Hallucination, auditory [Recovered/Resolved]
  - Fatigue [Recovered/Resolved]
  - General physical health deterioration [Recovered/Resolved]
  - Nervous system disorder [Recovered/Resolved]
  - Derealisation [Recovered/Resolved]
  - Impaired work ability [Recovered/Resolved]
  - Memory impairment [Recovered/Resolved]
  - Anger [Recovered/Resolved]
